FAERS Safety Report 8883258 (Version 1)
Quarter: 2012Q4

REPORT INFORMATION
  Report Type: 
  Country: US (occurrence: US)
  Receive Date: 20121102
  Receipt Date: 20121102
  Transmission Date: 20130627
  Serious: Yes (Other)
  Sender: FDA-Public Use
  Company Number: CHPA2012US022570

PATIENT
  Age: 83 Year
  Sex: Female

DRUGS (4)
  1. EXCEDRIN MIGRAINE [Suspect]
     Indication: FATIGUE
     Dosage: 1 tablet in the morning
     Route: 048
     Dates: start: 2002
  2. DAILY VITAMINS [Concomitant]
  3. ACESAL CALCIUM [Concomitant]
  4. BAYER ASPIRIN [Concomitant]
     Indication: PROPHYLAXIS
     Route: 048

REACTIONS (6)
  - Non-Hodgkin^s lymphoma [Recovered/Resolved]
  - Skin cancer [Recovered/Resolved]
  - Arthralgia [Recovered/Resolved]
  - Gastrooesophageal reflux disease [Not Recovered/Not Resolved]
  - Off label use [Unknown]
  - Incorrect dose administered [Unknown]
